FAERS Safety Report 21444103 (Version 1)
Quarter: 2022Q4

REPORT INFORMATION
  Report Type: Spontaneous
  Country: US (occurrence: US)
  Receive Date: 20221012
  Receipt Date: 20221012
  Transmission Date: 20230112
  Serious: Yes (Hospitalization)
  Sender: FDA-Public Use
  Company Number: US-BIOCODEX2-2021000879

PATIENT
  Age: 1 Year
  Sex: Female
  Weight: 9 kg

DRUGS (7)
  1. DIACOMIT [Suspect]
     Active Substance: STIRIPENTOL
     Indication: Severe myoclonic epilepsy of infancy
     Route: 065
     Dates: start: 20210604
  2. DIACOMIT [Suspect]
     Active Substance: STIRIPENTOL
     Indication: Severe myoclonic epilepsy of infancy
     Dosage: 250 MG TWICE A DAY
     Route: 065
  3. DIACOMIT [Suspect]
     Active Substance: STIRIPENTOL
     Indication: Severe myoclonic epilepsy of infancy
     Dosage: 250MG TWICE A DAY
     Route: 050
  4. DIACOMIT [Suspect]
     Active Substance: STIRIPENTOL
     Indication: Severe myoclonic epilepsy of infancy
     Dosage: 1 PACKET (250MG) IN 100ML OF WATER VIA GASTRIC TUBE TWICE DAILY
     Route: 050
  5. ONFI [Concomitant]
     Active Substance: CLOBAZAM
     Indication: Severe myoclonic epilepsy of infancy
     Dosage: 12.5MG DAILY
     Route: 050
  6. FINTEPLA [Concomitant]
     Active Substance: FENFLURAMINE
     Indication: Epilepsy
     Dosage: 8.3MG TWICE DAILY
     Route: 050
  7. PHENOBARBITAL [Concomitant]
     Active Substance: PHENOBARBITAL
     Indication: Epilepsy
     Dosage: 30MG TWICE DAILY
     Route: 050

REACTIONS (1)
  - Seizure [Unknown]
